FAERS Safety Report 5170429-5 (Version None)
Quarter: 2006Q4

REPORT INFORMATION
  Report Type: 
  Country: None (occurrence: None)
  Receive Date: 20061212
  Receipt Date: 20061204
  Transmission Date: 20070319
  Serious: Yes (Hospitalization)
  Sender: FDA-Public Use
  Company Number: CA-BOEHRINGER INGELHEIM PHARMACEUTICALS, INC.-2006-CN-00707CN

PATIENT
  Age: 48 Year
  Sex: Female

DRUGS (1)
  1. MICARDIS [Suspect]
     Indication: ESSENTIAL HYPERTENSION
     Route: 048
     Dates: start: 20050201, end: 20060201

REACTIONS (2)
  - CONVULSION [None]
  - RHABDOMYOLYSIS [None]
